FAERS Safety Report 10060678 (Version 1)
Quarter: 2014Q2

REPORT INFORMATION
  Report Type: Spontaneous
  Country: DE (occurrence: DE)
  Receive Date: 20140404
  Receipt Date: 20140404
  Transmission Date: 20141212
  Serious: Yes (Hospitalization, Other)
  Sender: FDA-Public Use
  Company Number: DE-PFIZER INC-2014092185

PATIENT
  Age: 75 Year
  Sex: Female

DRUGS (2)
  1. LYRICA [Suspect]
     Indication: HERPES ZOSTER
     Dosage: 75 MG, 3X/DAY
     Dates: start: 2013
  2. LYRICA [Suspect]
     Dosage: 200/300MG, 3X/DAY
     Dates: end: 201401

REACTIONS (8)
  - Intestinal haemorrhage [Unknown]
  - Liver function test abnormal [Recovering/Resolving]
  - Suicidal ideation [Unknown]
  - Drug withdrawal syndrome [Unknown]
  - Hyperhidrosis [Recovering/Resolving]
  - Feeling cold [Recovering/Resolving]
  - Tremor [Recovering/Resolving]
  - Nausea [Recovering/Resolving]
